FAERS Safety Report 11836147 (Version 1)
Quarter: 2015Q4

REPORT INFORMATION
  Report Type: Spontaneous
  Country: IT (occurrence: IT)
  Receive Date: 20151215
  Receipt Date: 20151215
  Transmission Date: 20160305
  Serious: Yes (Disabling)
  Sender: FDA-Public Use
  Company Number: IT-TEVA-615732ACC

PATIENT
  Age: 69 Year
  Sex: Male
  Weight: 57 kg

DRUGS (5)
  1. CREON [Concomitant]
     Active Substance: PANCRELIPASE AMYLASE\PANCRELIPASE LIPASE\PANCRELIPASE PROTEASE
     Indication: PRODUCT USED FOR UNKNOWN INDICATION
  2. IRINOTECAN HYDROCHLORIDE TRIHYDRATE [Suspect]
     Active Substance: IRINOTECAN HYDROCHLORIDE
     Indication: NEOPLASM RECURRENCE
     Route: 042
     Dates: start: 20150512, end: 20151118
  3. BEVACIZUMAB [Suspect]
     Active Substance: BEVACIZUMAB
     Indication: NEOPLASM RECURRENCE
     Route: 042
     Dates: start: 20150512, end: 20151118
  4. PANTORC [Concomitant]
     Active Substance: PANTOPRAZOLE SODIUM
     Indication: PRODUCT USED FOR UNKNOWN INDICATION
     Route: 048
  5. FLUOROURACIL. [Suspect]
     Active Substance: FLUOROURACIL
     Indication: NEOPLASM RECURRENCE
     Route: 042
     Dates: start: 20150512, end: 20151118

REACTIONS (1)
  - Hypoacusis [Not Recovered/Not Resolved]

NARRATIVE: CASE EVENT DATE: 20151023
